FAERS Safety Report 13037995 (Version 2)
Quarter: 2017Q1

REPORT INFORMATION
  Report Type: Report from Study
  Country: CA (occurrence: CA)
  Receive Date: 20161218
  Receipt Date: 20170105
  Transmission Date: 20170428
  Serious: Yes (Life-Threatening, Hospitalization, Other)
  Sender: FDA-Public Use
  Company Number: CA-ASTRAZENECA-2016SE80450

PATIENT
  Age: 22880 Day
  Sex: Female

DRUGS (14)
  1. VALSARTAN. [Concomitant]
     Active Substance: VALSARTAN
     Dosage: 320MG
     Route: 048
     Dates: start: 2011
  2. DAPAGLIFLOZIN [Suspect]
     Active Substance: DAPAGLIFLOZIN
     Indication: TYPE 1 DIABETES MELLITUS
     Route: 048
     Dates: start: 20160505, end: 20160722
  3. ASPIRIN. [Concomitant]
     Active Substance: ASPIRIN
     Dosage: 81MG
     Route: 048
     Dates: start: 2011
  4. VITAMIN B12 [Concomitant]
     Active Substance: CYANOCOBALAMIN
     Dosage: 100MCG
     Route: 048
     Dates: start: 2013
  5. NORVASC [Concomitant]
     Active Substance: AMLODIPINE BESYLATE
     Dosage: 5MG
     Route: 048
     Dates: start: 2013
  6. PRISTIQ EXTENDED-RELEASE [Concomitant]
     Active Substance: DESVENLAFAXINE SUCCINATE
     Dosage: 50MG
     Route: 048
     Dates: start: 2010
  7. CRESTOR [Concomitant]
     Active Substance: ROSUVASTATIN CALCIUM
     Dosage: 20MG
     Route: 048
     Dates: start: 2009
  8. RATIO-METFORMIN [Concomitant]
     Active Substance: METFORMIN HYDROCHLORIDE
     Dosage: 500MG
     Route: 048
     Dates: start: 201006
  9. EZETROL [Concomitant]
     Active Substance: EZETIMIBE
     Dosage: 10MG
     Route: 048
     Dates: start: 2011
  10. BISOPROLOL [Concomitant]
     Active Substance: BISOPROLOL
     Dosage: 10MG
     Route: 048
     Dates: start: 2011
  11. VITAMIN D [Concomitant]
     Active Substance: CHOLECALCIFEROL
     Dosage: 1000IU
     Route: 048
     Dates: start: 2012
  12. LEVEMIR [Concomitant]
     Active Substance: INSULIN DETEMIR
     Dosage: 109UNITS
     Route: 058
     Dates: start: 2015, end: 20160308
  13. HUMALOG [Concomitant]
     Active Substance: INSULIN LISPRO
     Dosage: 30UNITS
     Route: 058
     Dates: start: 2015, end: 20160308
  14. TWYNSTA [Concomitant]
     Active Substance: AMLODIPINE BESYLATE\TELMISARTAN
     Dosage: 5MG
     Route: 048
     Dates: start: 20160605

REACTIONS (6)
  - Diabetic ketoacidosis [Recovered/Resolved]
  - Seizure [Recovered/Resolved]
  - Cerebral haemorrhage [Recovered/Resolved]
  - Haematoma [Recovered/Resolved]
  - Subarachnoid haemorrhage [Recovered/Resolved with Sequelae]
  - Haemorrhage intracranial [Recovered/Resolved]

NARRATIVE: CASE EVENT DATE: 20160722
